FAERS Safety Report 5873047-6 (Version None)
Quarter: 2008Q3

REPORT INFORMATION
  Report Type: 
  Country: None (occurrence: None)
  Receive Date: 20080903
  Receipt Date: 20080825
  Transmission Date: 20090109
  Serious: Yes (Hospitalization)
  Sender: FDA-Public Use
  Company Number: 2007BI022964

PATIENT
  Age: 42 Year
  Sex: Female

DRUGS (3)
  1. AVONEX [Suspect]
     Indication: MULTIPLE SCLEROSIS
     Dosage: 30 UG; QW; IM; 30 UG; QW; IM; 30 UG; QW; IM
     Route: 030
     Dates: start: 20031219, end: 20070301
  2. AVONEX [Suspect]
     Indication: MULTIPLE SCLEROSIS
     Dosage: 30 UG; QW; IM; 30 UG; QW; IM; 30 UG; QW; IM
     Route: 030
     Dates: start: 20070401, end: 20070701
  3. AVONEX [Suspect]
     Indication: MULTIPLE SCLEROSIS
     Dosage: 30 UG; QW; IM; 30 UG; QW; IM; 30 UG; QW; IM
     Route: 030
     Dates: start: 20070701, end: 20071201

REACTIONS (7)
  - CARDIAC INFECTION [None]
  - DISEASE RECURRENCE [None]
  - HERNIA [None]
  - MULTIPLE SCLEROSIS RELAPSE [None]
  - PERICARDIAL EFFUSION [None]
  - PERICARDITIS [None]
  - POST PROCEDURAL COMPLICATION [None]
